FAERS Safety Report 10790681 (Version 1)
Quarter: 2015Q1

REPORT INFORMATION
  Report Type: Spontaneous
  Country: US (occurrence: US)
  Receive Date: 20150212
  Receipt Date: 20150212
  Transmission Date: 20150721
  Serious: Yes (Hospitalization, Other)
  Sender: FDA-Public Use
  Company Number: US-TEVA-540399USA

PATIENT
  Age: 75 Year
  Sex: Female

DRUGS (1)
  1. METHYLPREDNISOLONE. [Suspect]
     Active Substance: METHYLPREDNISOLONE
     Indication: SYSTEMIC LUPUS ERYTHEMATOSUS
     Route: 030
     Dates: start: 20110111

REACTIONS (5)
  - Injection site abscess [Unknown]
  - Staphylococcal infection [Unknown]
  - Inadequate aseptic technique in use of product [Unknown]
  - Product contamination [Unknown]
  - Injection site cellulitis [Unknown]
